FAERS Safety Report 6593288-2 (Version None)
Quarter: 2010Q1

REPORT INFORMATION
  Report Type: 
  Country: None (occurrence: None)
  Receive Date: 20100222
  Receipt Date: 20090115
  Transmission Date: 20100710
  Serious: No
  Sender: FDA-Public Use
  Company Number: US-BRISTOL-MYERS SQUIBB COMPANY-14420954

PATIENT
  Age: 70 Year
  Sex: Female

DRUGS (5)
  1. ORENCIA [Suspect]
     Indication: RHEUMATOID ARTHRITIS
     Dosage: GIVEN ON 10OCT08,25OCT08.
     Route: 042
     Dates: start: 20080926
  2. FOSAMAX [Concomitant]
     Dosage: 1 DOSAGE FORM = 70(UNITS NOT SPECIFIED)
  3. CALCIUM [Concomitant]
  4. VITAMIN D [Concomitant]
  5. ZOLOFT [Concomitant]
     Dosage: 1 DOSAGE FORM = 5(UNITS NOT SPECIFIED)

REACTIONS (1)
  - DYSHIDROSIS [None]
